FAERS Safety Report 16869373 (Version 1)
Quarter: 2019Q3

REPORT INFORMATION
  Report Type: Spontaneous
  Country: US (occurrence: US)
  Receive Date: 20190930
  Receipt Date: 20190930
  Transmission Date: 20191005
  Serious: Yes (Other)
  Sender: FDA-Public Use
  Company Number: US-ALEXION PHARMACEUTICALS INC.-A201914535

PATIENT
  Age: 17 Month
  Sex: Female

DRUGS (1)
  1. SOLIRIS [Suspect]
     Active Substance: ECULIZUMAB
     Indication: ATYPICAL HAEMOLYTIC URAEMIC SYNDROME
     Dosage: 300 MG, Q2W
     Route: 042
     Dates: start: 201901

REACTIONS (3)
  - Neutropenia [Not Recovered/Not Resolved]
  - Corona virus infection [Unknown]
  - Escherichia test positive [Unknown]

NARRATIVE: CASE EVENT DATE: 201906
